FAERS Safety Report 6160048-6 (Version None)
Quarter: 2009Q2

REPORT INFORMATION
  Report Type: 
  Country: None (occurrence: None)
  Receive Date: 20090416
  Receipt Date: 20090413
  Transmission Date: 20091009
  Serious: Yes (Death)
  Sender: FDA-Public Use
  Company Number: APP200900202

PATIENT
  Age: 82 Year
  Sex: Female

DRUGS (5)
  1. HEPARIN SODIUM INJECTION [Suspect]
     Indication: DIALYSIS
     Dosage: 4000 USP UNITS, MIXED WITH DIALYSIS SOLUTION FOR THERAPY, INTRAVENOUS
     Route: 042
     Dates: start: 20090410, end: 20090410
  2. INSULIN (INSULIN) [Concomitant]
  3. CELEXA [Concomitant]
  4. REQUIP [Concomitant]
  5. RENAL VITAMIN [Concomitant]

REACTIONS (2)
  - EXSANGUINATION [None]
  - PROCEDURAL COMPLICATION [None]
